FAERS Safety Report 8496930-4 (Version None)
Quarter: 2012Q3

REPORT INFORMATION
  Report Type: 
  Country: None (occurrence: None)
  Receive Date: 20120709
  Receipt Date: 20120705
  Transmission Date: 20120928
  Serious: Yes (Other)
  Sender: FDA-Public Use
  Company Number: CHPA2012US014148

PATIENT
  Age: 75 Year
  Sex: Female

DRUGS (2)
  1. PREVACID 24 HR [Suspect]
     Indication: GASTROOESOPHAGEAL REFLUX DISEASE
     Dosage: 15-30 MG, QD
     Route: 048
  2. PROTONIX [Suspect]
     Dosage: UNK, UNK
     Route: 048
     Dates: start: 20120601

REACTIONS (5)
  - OFF LABEL USE [None]
  - BURSITIS [None]
  - INCORRECT DRUG ADMINISTRATION DURATION [None]
  - CONSTIPATION [None]
  - OVERDOSE [None]
